FAERS Safety Report 8024663-7 (Version None)
Quarter: 2012Q1

REPORT INFORMATION
  Report Type: 
  Country: None (occurrence: None)
  Receive Date: 20120103
  Receipt Date: 20111221
  Transmission Date: 20120608
  Serious: Yes (Hospitalization)
  Sender: FDA-Public Use
  Company Number: WAES 1112USA02991

PATIENT
  Age: 69 Year
  Sex: Male

DRUGS (27)
  1. AXITINIB [Suspect]
     Indication: METASTATIC RENAL CELL CARCINOMA
     Dosage: 5 MG/BID/PO
     Route: 048
     Dates: start: 20110729, end: 20110818
  2. AXITINIB [Suspect]
     Indication: METASTATIC RENAL CELL CARCINOMA
     Dosage: 5 MG/BID/PO
     Route: 048
     Dates: start: 20101116, end: 20110714
  3. AXITINIB [Suspect]
     Indication: METASTATIC RENAL CELL CARCINOMA
     Dosage: 5 MG/BID/PO
     Route: 048
     Dates: start: 20110827, end: 20110926
  4. BLINDED THERAPY [Suspect]
     Indication: METASTATIC RENAL CELL CARCINOMA
     Dosage: PO
     Route: 048
     Dates: start: 20101214, end: 20110714
  5. PURSENNID (SENNA) [Concomitant]
  6. TIZANIDINE HCL [Concomitant]
  7. GASMOTIN [Concomitant]
  8. OXYCODONE HYDROCHLORIDE [Suspect]
     Indication: PAIN
     Dosage: 10 MG/PRN/PO
     Route: 048
     Dates: start: 20110506
  9. PRORENAL [Concomitant]
  10. TELEMINSOFT [Concomitant]
  11. ZOMETA [Concomitant]
  12. ACETAMINOPHEN [Concomitant]
  13. NORVASC [Concomitant]
  14. LAC-B [Concomitant]
  15. LANSOPRAZOLE [Concomitant]
  16. OLMESARTAN MEDOXOMIL [Concomitant]
  17. DECADRON [Suspect]
     Indication: PYREXIA
     Dosage: PO, 0.5 MG/DAILY/PO, 1 MG/DAILY/PO, 2 MG/DAILY/PO
     Route: 048
     Dates: start: 20110825, end: 20111011
  18. DECADRON [Suspect]
     Indication: PYREXIA
     Dosage: PO, 0.5 MG/DAILY/PO, 1 MG/DAILY/PO, 2 MG/DAILY/PO
     Route: 048
     Dates: start: 20111014, end: 20111028
  19. DECADRON [Suspect]
     Indication: PYREXIA
     Dosage: PO, 0.5 MG/DAILY/PO, 1 MG/DAILY/PO, 2 MG/DAILY/PO
     Route: 048
     Dates: start: 20110618, end: 20110824
  20. DECADRON [Suspect]
     Indication: PYREXIA
     Dosage: PO, 0.5 MG/DAILY/PO, 1 MG/DAILY/PO, 2 MG/DAILY/PO
     Route: 048
     Dates: start: 20111029
  21. MUCOSTA [Concomitant]
  22. MG OXIDE [Concomitant]
  23. OXYCONTIN [Suspect]
     Indication: PAIN
     Dosage: 40 MG/BID/PO,  50 MG/BID/PO
     Route: 048
     Dates: start: 20110507, end: 20110616
  24. OXYCONTIN [Suspect]
     Indication: PAIN
     Dosage: 40 MG/BID/PO,  50 MG/BID/PO
     Route: 048
     Dates: start: 20110617
  25. DAI-KENCHU-TO [Concomitant]
  26. HIRUDOID [Concomitant]
  27. MOBIC [Concomitant]

REACTIONS (11)
  - ENTEROCOLITIS [None]
  - FLATULENCE [None]
  - EXTRADURAL ABSCESS [None]
  - PYREXIA [None]
  - ABDOMINAL PAIN [None]
  - CHILLS [None]
  - TUMOUR ASSOCIATED FEVER [None]
  - VOMITING [None]
  - STOMATITIS [None]
  - ABDOMINAL DISTENSION [None]
  - DECREASED APPETITE [None]
